FAERS Safety Report 5738057-8 (Version None)
Quarter: 2008Q2

REPORT INFORMATION
  Report Type: 
  Country: None (occurrence: None)
  Receive Date: 20080509
  Receipt Date: 20080314
  Transmission Date: 20081010
  Serious: Yes (Other)
  Sender: FDA-Public Use
  Company Number: WWISSUE-160

PATIENT
  Sex: Male

DRUGS (3)
  1. PREDNISONE [Suspect]
     Indication: DYSPHAGIA
     Dosage: MAX40MG/DAILY/ORAL
     Route: 048
     Dates: start: 20071201
  2. PLAVIX 81 [Concomitant]
  3. ASPIRIN [Concomitant]

REACTIONS (1)
  - SUBDURAL HAEMATOMA [None]
